FAERS Safety Report 6310923-4 (Version None)
Quarter: 2009Q3

REPORT INFORMATION
  Report Type: 
  Country: None (occurrence: None)
  Receive Date: 20090812
  Receipt Date: 20090729
  Transmission Date: 20100115
  Serious: Yes (Hospitalization)
  Sender: FDA-Public Use
  Company Number: IDA-00241

PATIENT
  Age: 73 Year
  Sex: Female

DRUGS (6)
  1. AVLOCARDYL (PROPRANOLOL) [Suspect]
     Dosage: 20 MG BID ORAL
     Route: 048
  2. DOGMATIL (SULPIRIDE) [Suspect]
     Dosage: 50 MG TID ORAL
     Route: 048
  3. PLAVIX [Suspect]
     Dosage: 75 MG DAILY ORAL FORMULATION: TABLET
     Route: 048
  4. MIRTAZAPINE [Suspect]
     Dosage: 15 MG TID ORAL FORMULATION: TABLET
     Route: 048
  5. IMOVANE (ZOPICLONE) [Suspect]
     Dosage: 7.5 MG DAILY ORAL
     Route: 048
  6. TANAKAN (GINKGO BILOBA EXTRACT) [Concomitant]

REACTIONS (2)
  - DEEP VEIN THROMBOSIS [None]
  - PULMONARY EMBOLISM [None]
